FAERS Safety Report 11329202 (Version 1)
Quarter: 2015Q3

REPORT INFORMATION
  Report Type: Spontaneous
  Country: US (occurrence: US)
  Receive Date: 20150803
  Receipt Date: 20150803
  Transmission Date: 20151125
  Serious: Yes (Death)
  Sender: FDA-Public Use
  Company Number: US-ROCHE-1616745

PATIENT
  Age: 70 Year
  Sex: Male

DRUGS (1)
  1. ESBRIET [Suspect]
     Active Substance: PIRFENIDONE
     Indication: IDIOPATHIC PULMONARY FIBROSIS
     Dosage: 267 MG CAP, 3 CAPS TID
     Route: 048
     Dates: start: 20150218, end: 20150722

REACTIONS (1)
  - Death [Fatal]

NARRATIVE: CASE EVENT DATE: 20150722
